FAERS Safety Report 13569658 (Version 5)
Quarter: 2017Q3

REPORT INFORMATION
  Report Type: Spontaneous
  Country: KR (occurrence: KR)
  Receive Date: 20170522
  Receipt Date: 20170802
  Transmission Date: 20171127
  Serious: Yes (Hospitalization, Other)
  Sender: FDA-Public Use
  Company Number: KR-009507513-1705KOR009160

PATIENT
  Age: 55 Year
  Sex: Male
  Weight: 63.6 kg

DRUGS (55)
  1. DEXAMETHASONE SODIUM PHOSPHATE. [Concomitant]
     Active Substance: DEXAMETHASONE SODIUM PHOSPHATE
     Indication: ANTIEMETIC SUPPORTIVE CARE
     Dosage: STRENGTH: 5MG/ML; 12 MG, ONCE
     Route: 042
     Dates: start: 20160615, end: 20160615
  2. DEXAMETHASONE SODIUM PHOSPHATE. [Concomitant]
     Active Substance: DEXAMETHASONE SODIUM PHOSPHATE
     Dosage: STRENGTH: 5MG/ML;12 MG, ONCE
     Route: 042
     Dates: start: 20160923, end: 20160923
  3. DEXAMETHASONE SODIUM PHOSPHATE. [Concomitant]
     Active Substance: DEXAMETHASONE SODIUM PHOSPHATE
     Dosage: STRENGTH: 5MG/ML;8 MG, ONCE
     Route: 042
     Dates: start: 20161209, end: 20161209
  4. BEECOM [Concomitant]
     Indication: PROPHYLAXIS
     Dosage: 10 MG, QD
     Route: 048
     Dates: start: 20160610, end: 20160719
  5. LASIX [Concomitant]
     Active Substance: FUROSEMIDE
     Indication: PREMEDICATION
     Dosage: STRENGTH: 20MG/2ML; 20 MG, ONCE
     Route: 042
     Dates: start: 20160615, end: 20160615
  6. MANNITOL. [Concomitant]
     Active Substance: MANNITOL
     Dosage: CJ 20%; 100 ML, ONCE
     Route: 042
     Dates: start: 20161019, end: 20161019
  7. MANNITOL. [Concomitant]
     Active Substance: MANNITOL
     Dosage: CJ 20%; 100 ML, ONCE
     Route: 042
     Dates: start: 20161208, end: 20161208
  8. DEXAMETHASONE SODIUM PHOSPHATE. [Concomitant]
     Active Substance: DEXAMETHASONE SODIUM PHOSPHATE
     Dosage: STRENGTH: 5MG/ML;8 MG, ONCE
     Route: 042
     Dates: start: 20161019, end: 20161019
  9. DEXAMETHASONE SODIUM PHOSPHATE. [Concomitant]
     Active Substance: DEXAMETHASONE SODIUM PHOSPHATE
     Dosage: STRENGTH: 5MG/ML;12 MG, ONCE
     Route: 042
     Dates: start: 20161111, end: 20161111
  10. DEXAMETHASONE. [Concomitant]
     Active Substance: DEXAMETHASONE
     Dosage: 8 MG, QD
     Route: 048
     Dates: start: 20161210, end: 20161211
  11. DEXILANT [Concomitant]
     Active Substance: DEXLANSOPRAZOLE
     Indication: PROPHYLAXIS
     Dosage: 30 MG, QD
     Route: 048
     Dates: start: 20160409, end: 20160714
  12. SOLETON [Concomitant]
     Active Substance: ZALTOPROFEN
     Indication: PROCEDURAL PAIN
     Dosage: 80 MG, TID
     Route: 048
     Dates: start: 20160610, end: 20160714
  13. CISPLATIN. [Concomitant]
     Active Substance: CISPLATIN
     Indication: NEOPLASM MALIGNANT
     Dosage: STRENGTH: 50MG/100ML; 150 MG, ONCE, CYCLE 1
     Route: 042
     Dates: start: 20160615, end: 20160615
  14. CISPLATIN. [Concomitant]
     Active Substance: CISPLATIN
     Dosage: STRENGTH: 50MG/100ML; 83 MG, ONCE, CYCLE 2
     Route: 042
     Dates: start: 20161208, end: 20161208
  15. DEXAMETHASONE. [Concomitant]
     Active Substance: DEXAMETHASONE
     Dosage: 8 MG, BID
     Route: 048
     Dates: start: 20160617, end: 20160618
  16. ALOXI [Concomitant]
     Active Substance: PALONOSETRON HYDROCHLORIDE
     Indication: ANTIEMETIC SUPPORTIVE CARE
     Dosage: 0.25 MG, ONCE
     Route: 042
     Dates: start: 20160615, end: 20160615
  17. LASIX [Concomitant]
     Active Substance: FUROSEMIDE
     Dosage: STRENGTH: 20MG/2ML; 20 MG, ONCE
     Route: 042
     Dates: start: 20161208, end: 20161208
  18. CISPLATIN. [Concomitant]
     Active Substance: CISPLATIN
     Indication: NEOPLASM MALIGNANT
     Dosage: STRENGTH: 10MG/20ML; 22 MG, ONCE, CYCLE 1
     Route: 042
     Dates: start: 20160615, end: 20160615
  19. DEXAMETHASONE. [Concomitant]
     Active Substance: DEXAMETHASONE
     Indication: ANTIEMETIC SUPPORTIVE CARE
     Dosage: 8 MG, QD
     Route: 048
     Dates: start: 20160616, end: 20160616
  20. LASIX [Concomitant]
     Active Substance: FUROSEMIDE
     Dosage: STRENGTH: 20MG/2ML; 20 MG, ONCE
     Route: 042
     Dates: start: 20161111, end: 20161111
  21. MEGACE [Concomitant]
     Active Substance: MEGESTROL ACETATE
     Indication: PROPHYLAXIS
     Dosage: 625 MG, ONCE
     Route: 048
     Dates: start: 20160529, end: 20160711
  22. DEXAMETHASONE SODIUM PHOSPHATE. [Concomitant]
     Active Substance: DEXAMETHASONE SODIUM PHOSPHATE
     Dosage: STRENGTH: 5MG/ML;12 MG, ONCE
     Route: 042
     Dates: start: 20160706, end: 20160706
  23. MANNITOL. [Concomitant]
     Active Substance: MANNITOL
     Dosage: CJ 20%; 100 ML, ONCE
     Route: 042
     Dates: start: 20160615, end: 20160615
  24. MANNITOL. [Concomitant]
     Active Substance: MANNITOL
     Dosage: CJ 20%; 100 ML, ONCE
     Route: 042
     Dates: start: 20160923, end: 20160923
  25. CISPLATIN. [Concomitant]
     Active Substance: CISPLATIN
     Dosage: STRENGTH: 50MG/100ML; 100 MG, ONCE, CYCLE 1
     Route: 042
     Dates: start: 20161019, end: 20161019
  26. CISPLATIN. [Concomitant]
     Active Substance: CISPLATIN
     Dosage: STRENGTH: 50MG/100ML; 83 MG, ONCE, CYCLE 1
     Route: 042
     Dates: start: 20161111, end: 20161111
  27. DEXAMETHASONE SODIUM PHOSPHATE. [Concomitant]
     Active Substance: DEXAMETHASONE SODIUM PHOSPHATE
     Dosage: STRENGTH: 5MG/ML;8 MG, ONCE
     Route: 042
     Dates: start: 20160924, end: 20160924
  28. DEXAMETHASONE SODIUM PHOSPHATE. [Concomitant]
     Active Substance: DEXAMETHASONE SODIUM PHOSPHATE
     Dosage: STRENGTH: 5MG/ML;8 MG, BID
     Route: 042
     Dates: start: 20160925, end: 20160925
  29. DEXAMETHASONE SODIUM PHOSPHATE. [Concomitant]
     Active Substance: DEXAMETHASONE SODIUM PHOSPHATE
     Dosage: STRENGTH: 5MG/ML;12 MG, ONCE
     Route: 042
     Dates: start: 20161019, end: 20161019
  30. ALOXI [Concomitant]
     Active Substance: PALONOSETRON HYDROCHLORIDE
     Dosage: 0.25 MG, ONCE
     Route: 042
     Dates: start: 20160706, end: 20160706
  31. ALOXI [Concomitant]
     Active Substance: PALONOSETRON HYDROCHLORIDE
     Dosage: 0.25 MG, ONCE
     Route: 042
     Dates: start: 20161111, end: 20161111
  32. FOLIC ACID. [Concomitant]
     Active Substance: FOLIC ACID
     Indication: FOLATE DEFICIENCY
     Dosage: 1 MG, QD
     Route: 048
     Dates: start: 20160406
  33. ENTELON [Concomitant]
     Indication: PROPHYLAXIS
     Dosage: 150 MG, BID
     Route: 048
     Dates: start: 20160522
  34. MANNITOL. [Concomitant]
     Active Substance: MANNITOL
     Dosage: CJ 20%; 100 ML, ONCE
     Route: 042
     Dates: start: 20161111, end: 20161111
  35. EMEND (FOSAPREPITANT DIMEGLUMINE) [Suspect]
     Active Substance: FOSAPREPITANT DIMEGLUMINE
     Dosage: 150 MG, ONCE
     Route: 042
     Dates: start: 20160706, end: 20160706
  36. DEXAMETHASONE. [Concomitant]
     Active Substance: DEXAMETHASONE
     Dosage: 8 MG, QD
     Route: 048
     Dates: start: 20161021, end: 20161021
  37. ALOXI [Concomitant]
     Active Substance: PALONOSETRON HYDROCHLORIDE
     Dosage: 0.25 MG, ONCE
     Route: 042
     Dates: start: 20161208, end: 20161208
  38. SYNTHYROXINE [Concomitant]
     Active Substance: LEVOTHYROXINE SODIUM
     Indication: PROPHYLAXIS
     Dosage: 0.05 MG, QD
     Route: 048
     Dates: start: 20160519
  39. LYRICA [Concomitant]
     Active Substance: PREGABALIN
     Indication: NEUROPATHY PERIPHERAL
     Dosage: 75 MG, BID
     Route: 048
     Dates: start: 20160407, end: 20161028
  40. LASIX [Concomitant]
     Active Substance: FUROSEMIDE
     Dosage: STRENGTH: 20MG/2ML; 20 MG, ONCE
     Route: 042
     Dates: start: 20160706, end: 20160706
  41. LASIX [Concomitant]
     Active Substance: FUROSEMIDE
     Dosage: STRENGTH: 20MG/2ML; 20 MG, ONCE
     Route: 042
     Dates: start: 20160923, end: 20160923
  42. LASIX [Concomitant]
     Active Substance: FUROSEMIDE
     Dosage: STRENGTH: 20MG/2ML; 20 MG, ONCE
     Route: 042
     Dates: start: 20161019, end: 20161019
  43. BOLGRE SOLUTION [Concomitant]
     Indication: ANAEMIA PROPHYLAXIS
     Dosage: 10 ML, BID
     Route: 048
     Dates: start: 20160409, end: 20160614
  44. EMEND (FOSAPREPITANT DIMEGLUMINE) [Suspect]
     Active Substance: FOSAPREPITANT DIMEGLUMINE
     Dosage: 150 MG, ONCE
     Route: 042
     Dates: start: 20160923, end: 20160923
  45. EMEND (FOSAPREPITANT DIMEGLUMINE) [Suspect]
     Active Substance: FOSAPREPITANT DIMEGLUMINE
     Dosage: 150 MG, ONCE
     Route: 042
     Dates: start: 20161019, end: 20161019
  46. DEXAMETHASONE SODIUM PHOSPHATE. [Concomitant]
     Active Substance: DEXAMETHASONE SODIUM PHOSPHATE
     Dosage: STRENGTH: 5MG/ML;8 MG, BID
     Route: 042
     Dates: start: 20161020, end: 20161020
  47. DEXAMETHASONE SODIUM PHOSPHATE. [Concomitant]
     Active Substance: DEXAMETHASONE SODIUM PHOSPHATE
     Dosage: STRENGTH: 5MG/ML;8 MG, ONCE
     Route: 042
     Dates: start: 20161021, end: 20161021
  48. DEXAMETHASONE SODIUM PHOSPHATE. [Concomitant]
     Active Substance: DEXAMETHASONE SODIUM PHOSPHATE
     Dosage: STRENGTH: 5MG/ML;12 MG, ONCE
     Route: 042
     Dates: start: 20161208, end: 20161208
  49. THIAMINE HYDROCHLORIDE. [Concomitant]
     Active Substance: THIAMINE HYDROCHLORIDE
     Indication: PROPHYLAXIS
     Dosage: 10 MG, TID
     Route: 048
     Dates: start: 20160401, end: 20160719
  50. MANNITOL. [Concomitant]
     Active Substance: MANNITOL
     Indication: CHEMOTHERAPY
     Dosage: CJ 20%; 100 ML, ONCE
     Route: 042
     Dates: start: 20160706, end: 20160706
  51. EMEND (FOSAPREPITANT DIMEGLUMINE) [Suspect]
     Active Substance: FOSAPREPITANT DIMEGLUMINE
     Indication: PROPHYLAXIS OF NAUSEA AND VOMITING
     Dosage: 150 MG, ONCE
     Route: 042
     Dates: start: 20160615, end: 20160615
  52. EMEND (FOSAPREPITANT DIMEGLUMINE) [Suspect]
     Active Substance: FOSAPREPITANT DIMEGLUMINE
     Dosage: 150 MG, ONCE
     Route: 042
     Dates: start: 20161111, end: 20161111
  53. EMEND (FOSAPREPITANT DIMEGLUMINE) [Suspect]
     Active Substance: FOSAPREPITANT DIMEGLUMINE
     Dosage: 150 MG, ONCE
     Route: 042
     Dates: start: 20161208, end: 20161208
  54. CISPLATIN. [Concomitant]
     Active Substance: CISPLATIN
     Indication: CHEMOTHERAPY
     Dosage: STRENGTH: 50MG/100ML; 130 MG, ONCE, CYCLE 2
     Route: 042
     Dates: start: 20160706, end: 20160706
  55. CISPLATIN. [Concomitant]
     Active Substance: CISPLATIN
     Dosage: STRENGTH: 50MG/100ML; 126 MG, ONCE, CYCLE 1
     Route: 042
     Dates: start: 20160923, end: 20160923

REACTIONS (5)
  - Blood creatinine increased [Recovered/Resolved]
  - Cancer pain [Not Recovered/Not Resolved]
  - Stomatitis [Recovered/Resolved]
  - Hypophagia [Recovered/Resolved]
  - Oral pain [Recovered/Resolved]

NARRATIVE: CASE EVENT DATE: 20160622
